FAERS Safety Report 5572507-5 (Version None)
Quarter: 2007Q4

REPORT INFORMATION
  Report Type: 
  Country: None (occurrence: None)
  Receive Date: 20071219
  Receipt Date: 20071205
  Transmission Date: 20080405
  Serious: Yes (Life-Threatening)
  Sender: FDA-Public Use
  Company Number: 2007EU002488

PATIENT
  Age: 72 Year
  Sex: Male

DRUGS (6)
  1. VESICARE [Suspect]
     Indication: URINARY INCONTINENCE
     Dosage: 5 MG, ORAL
     Route: 048
     Dates: start: 20070101, end: 20070101
  2. VASILIP (SIMVASTATIN) TABLET [Concomitant]
  3. ISOSORBIDE MONONITRATE [Concomitant]
  4. METOCARD (METOPROLOL TARTRATE) [Concomitant]
  5. ACARD [Concomitant]
  6. ENALAPRIL MALEATE [Concomitant]

REACTIONS (5)
  - ALTERED STATE OF CONSCIOUSNESS [None]
  - BALANCE DISORDER [None]
  - LOSS OF CONSCIOUSNESS [None]
  - SYNCOPE [None]
  - VERTIGO [None]
